FAERS Safety Report 10250554 (Version 1)
Quarter: 2014Q2

REPORT INFORMATION
  Report Type: Spontaneous
  Country: US (occurrence: US)
  Receive Date: 20140620
  Receipt Date: 20140620
  Transmission Date: 20141212
  Serious: Yes (Other)
  Sender: FDA-Public Use
  Company Number: US-GLAXOSMITHKLINE-A1077110A

PATIENT
  Age: 72 Year
  Sex: Female

DRUGS (3)
  1. COREG CR [Suspect]
     Indication: CARDIOMYOPATHY
     Dosage: 80MG PER DAY
     Route: 048
  2. CARVEDILOL [Suspect]
     Indication: CARDIOMYOPATHY
     Route: 048
  3. LISINOPRIL [Suspect]
     Indication: PRODUCT USED FOR UNKNOWN INDICATION
     Route: 065

REACTIONS (6)
  - Hip arthroplasty [Unknown]
  - Muscle rupture [Unknown]
  - Fatigue [Unknown]
  - Palpitations [Unknown]
  - Blood pressure fluctuation [Unknown]
  - Haemoglobin decreased [Unknown]
